FAERS Safety Report 6059556-8 (Version None)
Quarter: 2009Q1

REPORT INFORMATION
  Report Type: 
  Country: None (occurrence: None)
  Receive Date: 20090130
  Receipt Date: 20090119
  Transmission Date: 20090719
  Serious: No
  Sender: FDA-Public Use
  Company Number: FR-EISAI MEDIAL RESEARCH-M7001-02890-SPO-FR

PATIENT
  Sex: Male
  Weight: 77 kg

DRUGS (7)
  1. TARGRETIN [Suspect]
     Indication: MYCOSIS FUNGOIDES
     Route: 048
     Dates: start: 20070227, end: 20071127
  2. DOXORUBICIN HCL [Suspect]
     Dosage: UNKNOWN
     Dates: start: 20071101
  3. DETENSIEL [Concomitant]
     Indication: HYPERTENSION
     Route: 048
  4. ATARAX [Concomitant]
     Indication: PRURITUS
     Route: 048
     Dates: start: 20061001
  5. LIPANTHYL [Concomitant]
     Indication: HYPERTRIGLYCERIDAEMIA
     Route: 048
     Dates: start: 20070201
  6. LEVOTHYROX [Concomitant]
     Indication: HYPOTHYROIDISM
     Route: 048
     Dates: start: 20070401
  7. TAHOR [Concomitant]
     Indication: HYPERTRIGLYCERIDAEMIA
     Route: 048
     Dates: start: 20070801

REACTIONS (4)
  - HYPERTRIGLYCERIDAEMIA [None]
  - HYPOTHYROIDISM [None]
  - NEUROPATHY PERIPHERAL [None]
  - THERAPEUTIC RESPONSE UNEXPECTED [None]
